FAERS Safety Report 20793676 (Version 1)
Quarter: 2022Q2

REPORT INFORMATION
  Report Type: Spontaneous
  Country: DE (occurrence: DE)
  Receive Date: 20220506
  Receipt Date: 20220506
  Transmission Date: 20220721
  Serious: Yes (Other)
  Sender: FDA-Public Use
  Company Number: DE-drreddys-LIT/GER/22/0149637

PATIENT
  Age: 32 Year
  Sex: Female

DRUGS (3)
  1. LEVETIRACETAM [Suspect]
     Active Substance: LEVETIRACETAM
     Indication: Myoclonus
     Dosage: UP TO 1000 MG
  2. PRIMIDONE [Suspect]
     Active Substance: PRIMIDONE
     Indication: Myoclonus
     Dosage: UP TO 31.25 MG
  3. PROPRANOLOL [Suspect]
     Active Substance: PROPRANOLOL HYDROCHLORIDE
     Indication: Myoclonus
     Dosage: UP TO 30 MG

REACTIONS (1)
  - Drug ineffective [Unknown]
